FAERS Safety Report 16018954 (Version 1)
Quarter: 2019Q1

REPORT INFORMATION
  Report Type: Spontaneous
  Country: GR (occurrence: GR)
  Receive Date: 20190228
  Receipt Date: 20190228
  Transmission Date: 20190418
  Serious: Yes (Hospitalization, Other)
  Sender: FDA-Public Use
  Company Number: GR-JNJFOC-20190238344

PATIENT
  Age: 82 Year
  Sex: Male

DRUGS (7)
  1. XARELTO [Suspect]
     Active Substance: RIVAROXABAN
     Indication: ATRIAL FIBRILLATION
     Route: 048
     Dates: start: 20190218
  2. SALOSPIR [Concomitant]
     Active Substance: ASPIRIN
     Route: 065
     Dates: end: 201812
  3. LYRICA [Concomitant]
     Active Substance: PREGABALIN
     Route: 065
  4. GASTROGRAFIN [Concomitant]
     Active Substance: DIATRIZOATE MEGLUMINE\DIATRIZOATE SODIUM
     Route: 065
     Dates: start: 20190218, end: 20190219
  5. XARELTO [Suspect]
     Active Substance: RIVAROXABAN
     Indication: ATRIAL FIBRILLATION
     Route: 048
     Dates: start: 201709, end: 20190217
  6. CONTROLOC CONTROL [Concomitant]
     Route: 065
  7. COLCHICINE. [Concomitant]
     Active Substance: COLCHICINE
     Indication: VITAMIN B12 DEFICIENCY
     Route: 065
     Dates: start: 201901

REACTIONS (6)
  - Gastrointestinal haemorrhage [Recovered/Resolved]
  - Laryngeal cancer stage I [Unknown]
  - Lymphadenopathy [Unknown]
  - Paraesthesia [Not Recovered/Not Resolved]
  - Diarrhoea [Recovered/Resolved]
  - Faeces discoloured [Unknown]

NARRATIVE: CASE EVENT DATE: 2018
